FAERS Safety Report 6770628-2 (Version None)
Quarter: 2010Q2

REPORT INFORMATION
  Report Type: 
  Country: None (occurrence: None)
  Receive Date: 20100615
  Receipt Date: 20100606
  Transmission Date: 20101027
  Serious: Yes (Other)
  Sender: FDA-Public Use
  Company Number: US-BAYER-201016378BCC

PATIENT
  Age: 43 Year
  Sex: Male
  Weight: 95 kg

DRUGS (1)
  1. ASPIRIN [Suspect]
     Indication: DRUG USE FOR UNKNOWN INDICATION
     Dosage: CONSUMER TOOK 40 TO 50 ASPIRIN YESTERDAY BEGINNING AT 9:00 AM UNTIL 5:00 PM
     Route: 048
     Dates: start: 20100605

REACTIONS (5)
  - DEAFNESS [None]
  - HYPERHIDROSIS [None]
  - INTENTIONAL DRUG MISUSE [None]
  - LETHARGY [None]
  - VOMITING [None]
